FAERS Safety Report 24444100 (Version 2)
Quarter: 2024Q4

REPORT INFORMATION
  Report Type: Report from Study
  Country: US (occurrence: US)
  Receive Date: 20241016
  Receipt Date: 20241017
  Transmission Date: 20250114
  Serious: No
  Sender: ROCHE
  Company Number: US-ROCHE-2687253

PATIENT
  Age: 58 Year
  Sex: Female
  Weight: 43.1 kg

DRUGS (29)
  1. RITUXAN [Suspect]
     Active Substance: RITUXIMAB
     Indication: Granulomatosis with polyangiitis
     Dosage: ONGOING: YES, DAY 0 AND DAY 14 THE SECOND DOSE DUE ON 28/SEP/2020 THEN EVERY SIX MONTHS. DATE OF TRE
     Route: 042
     Dates: start: 20200914
  2. RITUXAN [Suspect]
     Active Substance: RITUXIMAB
     Indication: Deafness neurosensory
  3. RITUXAN [Suspect]
     Active Substance: RITUXIMAB
     Indication: Mastoiditis
  4. RITUXAN [Suspect]
     Active Substance: RITUXIMAB
     Indication: Deafness unilateral
  5. RITUXAN [Suspect]
     Active Substance: RITUXIMAB
     Indication: Granulomatosis with polyangiitis
  6. RITUXAN [Suspect]
     Active Substance: RITUXIMAB
     Indication: Granulomatosis with polyangiitis
     Route: 065
  7. BACITRACIN ZINC [Concomitant]
     Route: 061
  8. CALCIUM CARBONATE [Concomitant]
     Active Substance: CALCIUM CARBONATE
     Route: 048
  9. ERGOCALCIFEROL [Concomitant]
     Active Substance: ERGOCALCIFEROL
     Dosage: 50000 UNITS
     Route: 048
  10. HEPARIN [Concomitant]
     Active Substance: HEPARIN SODIUM
     Dosage: 5000 UNITS? FREQUENCY TEXT:Q12H SCH
     Route: 058
  11. INSULIN LISPRO [Concomitant]
     Active Substance: INSULIN LISPRO
     Dosage: 0-8 UNITS, TID WC
     Route: 058
  12. INSULIN LISPRO [Concomitant]
     Active Substance: INSULIN LISPRO
     Dosage: NIGHTLY, 0-4 UNITS
     Route: 058
  13. VENOFER [Concomitant]
     Active Substance: IRON SUCROSE
     Dosage: FREQUENCY TEXT:DAILY
     Route: 042
  14. KETOTIFEN [Concomitant]
     Active Substance: KETOTIFEN
     Dosage: 1 DROP BOTH EYES
  15. LIDOCAINE [Concomitant]
     Active Substance: LIDOCAINE
     Route: 062
  16. SODIUM CHLORIDE [Concomitant]
     Active Substance: SODIUM CHLORIDE
     Dosage: FREQUENCY TEXT:QAM
     Route: 050
  17. SODIUM CHLORIDE [Concomitant]
     Active Substance: SODIUM CHLORIDE
     Dosage: PRN
  18. PANTOPRAZOLE [Concomitant]
     Active Substance: PANTOPRAZOLE
     Dosage: FREQUENCY TEXT:DAILY
     Route: 048
  19. POTASSIUM CHLORIDE [Concomitant]
     Active Substance: POTASSIUM CHLORIDE
     Route: 048
  20. PREDNISONE [Concomitant]
     Active Substance: PREDNISONE
     Route: 048
  21. SULFAMETHOXAZOLE\TRIMETHOPRIM [Concomitant]
     Active Substance: SULFAMETHOXAZOLE\TRIMETHOPRIM
     Dosage: ONCE PER DAY ON MONDAY, WEDNESDAY AND FRIDAY
     Route: 048
  22. ACETAMINOPHEN [Concomitant]
     Active Substance: ACETAMINOPHEN
     Dosage: PRN
  23. ALTEPLASE [Concomitant]
     Active Substance: ALTEPLASE
     Dosage: PRN
  24. HYPROMELLOSE, UNSPECIFIED [Concomitant]
     Active Substance: HYPROMELLOSE, UNSPECIFIED
     Dosage: PRN
  25. DEXTROSE [Concomitant]
     Active Substance: DEXTROSE MONOHYDRATE
     Dosage: PRN
  26. DEXTROSE [Concomitant]
     Active Substance: DEXTROSE MONOHYDRATE
     Dosage: PRN
  27. GLUCAGON [Concomitant]
     Active Substance: GLUCAGON
     Dosage: PRN
  28. ONDANSETRON [Concomitant]
     Active Substance: ONDANSETRON
     Dosage: PRN
  29. METHYLPREDNISOLONE [Concomitant]
     Active Substance: METHYLPREDNISOLONE
     Dosage: FOR 3 DAYS
     Route: 042
     Dates: start: 20200909, end: 20200912

REACTIONS (2)
  - Off label use [Unknown]
  - Hypoacusis [Unknown]

NARRATIVE: CASE EVENT DATE: 20200914
